FAERS Safety Report 7898114 (Version 7)
Quarter: 2013Q4

REPORT INFORMATION
  Report Type: Spontaneous
  Country: US (occurrence: None)
  Receive Date: 20110413
  Receipt Date: 20131226
  Transmission Date: 20140711
  Serious: Yes (Other)
  Sender: FDA-Public Use
  Company Number: PHHY2011US29031

PATIENT
  Age: 51 Year
  Sex: Female

DRUGS (6)
  1. GILENYA (FINGOLIMOD) [Suspect]
     Indication: RELAPSING-REMITTING MULTIPLE SCLEROSIS
     Route: 048
     Dates: start: 20110329
  2. DIAZEPAM (DIAZEPAM), 2 MG [Concomitant]
  3. IBUPROFEN (IBUPROFEN) [Concomitant]
  4. VITAMIN D (ERGOCALCIFEROL) [Concomitant]
  5. PRILOSEC (OMEPRAZOLE) [Concomitant]
  6. LODOZ (BISOPROLOL FUMARATE, HYDROCHLOROTHIAZIDE) [Concomitant]

REACTIONS (2)
  - Visual impairment [None]
  - Vision blurred [None]
